FAERS Safety Report 4688179-8 (Version None)
Quarter: 2005Q2

REPORT INFORMATION
  Report Type: 
  Country: None (occurrence: None)
  Receive Date: 20050609
  Receipt Date: 20050527
  Transmission Date: 20051028
  Serious: Yes (Hospitalization, Other)
  Sender: FDA-Public Use
  Company Number: 2005-01832

PATIENT

DRUGS (2)
  1. FERRLECIT [Suspect]
     Indication: VITAMIN SUPPLEMENTATION
     Dosage: 250 MG, OVER 60 MINUTES, IV DRIP
     Route: 041
  2. EPOETIN ALFA (EPOETIN ALFA) [Concomitant]

REACTIONS (12)
  - ASTHENIA [None]
  - CHEST PAIN [None]
  - FAECAL INCONTINENCE [None]
  - HYPERHIDROSIS [None]
  - HYPERSENSITIVITY [None]
  - INFUSION SITE BURNING [None]
  - INFUSION SITE PAIN [None]
  - OFF LABEL USE [None]
  - OVERDOSE [None]
  - PAIN IN EXTREMITY [None]
  - SOMNOLENCE [None]
  - URINARY INCONTINENCE [None]
